FAERS Safety Report 12945148 (Version 1)
Quarter: 2016Q4

REPORT INFORMATION
  Report Type: Spontaneous
  Country: US (occurrence: US)
  Receive Date: 20161115
  Receipt Date: 20161115
  Transmission Date: 20170207
  Serious: Yes (Death)
  Sender: FDA-Public Use
  Company Number: None

PATIENT
  Age: 83 Year
  Sex: Female
  Weight: 69.3 kg

DRUGS (1)
  1. FERAHEME [Suspect]
     Active Substance: FERUMOXYTOL NON-STOICHIOMETRIC MAGNETITE
     Indication: ANAEMIA
     Dosage: ?          OTHER FREQUENCY:X1;?
     Route: 041
     Dates: start: 20161110, end: 20161110

REACTIONS (1)
  - Pulseless electrical activity [None]

NARRATIVE: CASE EVENT DATE: 20161110
